FAERS Safety Report 21694176 (Version 1)
Quarter: 2022Q4

REPORT INFORMATION
  Report Type: Spontaneous
  Country: IN (occurrence: None)
  Receive Date: 20221206
  Receipt Date: 20221206
  Transmission Date: 20230113
  Serious: Yes (Hospitalization)
  Sender: FDA-Public Use
  Company Number: None

PATIENT
  Age: 28 Year
  Sex: Female
  Weight: 50 kg

DRUGS (1)
  1. ENOXAPARIN [Suspect]
     Active Substance: ENOXAPARIN
     Indication: Hypercoagulation
     Dates: start: 20220815, end: 20220915

REACTIONS (7)
  - Injection site erythema [None]
  - Injection site pruritus [None]
  - Injection site eczema [None]
  - Type IV hypersensitivity reaction [None]
  - Skin lesion [None]
  - Injection site discolouration [None]
  - Injection site scar [None]

NARRATIVE: CASE EVENT DATE: 20220815
